FAERS Safety Report 6337718-X (Version None)
Quarter: 2009Q3

REPORT INFORMATION
  Report Type: 
  Country: None (occurrence: None)
  Receive Date: 20090902
  Receipt Date: 20090828
  Transmission Date: 20100115
  Serious: Yes (Death, Hospitalization)
  Sender: FDA-Public Use
  Company Number: FR-BRISTOL-MYERS SQUIBB COMPANY-14760201

PATIENT
  Age: 66 Year
  Sex: Female

DRUGS (2)
  1. CETUXIMAB [Suspect]
     Indication: HEAD AND NECK CANCER
     Dosage: LAST DOSE 370MG
     Route: 042
     Dates: start: 20090326, end: 20090525
  2. RADIOTHERAPY [Suspect]
     Indication: HEAD AND NECK CANCER
     Dosage: 1 DF- 1.8GY/FRACTION 2APR09-02JUN09, AGAIN FROM 17JUN09-03JUL09
     Dates: start: 20090402, end: 20090703

REACTIONS (3)
  - DERMATITIS [None]
  - ENDOCARDITIS [None]
  - STAPHYLOCOCCAL SEPSIS [None]
